FAERS Safety Report 7844505-X (Version None)
Quarter: 2011Q4

REPORT INFORMATION
  Report Type: 
  Country: None (occurrence: None)
  Receive Date: 20111025
  Receipt Date: 20111024
  Transmission Date: 20120403
  Serious: Yes (Hospitalization, Other)
  Sender: FDA-Public Use
  Company Number: IT-SANOFI-AVENTIS-2011SA069783

PATIENT
  Sex: Female

DRUGS (3)
  1. TRASTUZUMAB [Suspect]
     Indication: BREAST CANCER
  2. TAXOTERE [Suspect]
     Indication: BREAST CANCER
     Route: 041
     Dates: start: 20110105, end: 20110105
  3. TAXOTERE [Suspect]
     Route: 041
     Dates: start: 20110126, end: 20110126

REACTIONS (16)
  - FEBRILE NEUTROPENIA [None]
  - RETINAL DETACHMENT [None]
  - VITREOUS HAEMORRHAGE [None]
  - HYPERSENSITIVITY [None]
  - THROMBOCYTOPENIA [None]
  - DIARRHOEA [None]
  - METASTASIS [None]
  - REFUSAL OF TREATMENT BY PATIENT [None]
  - BLINDNESS [None]
  - MUCOSAL INFLAMMATION [None]
  - HAEMATURIA [None]
  - PAIN [None]
  - ABDOMINAL PAIN [None]
  - CONJUNCTIVITIS [None]
  - VISUAL IMPAIRMENT [None]
  - BLINDNESS UNILATERAL [None]
